FAERS Safety Report 16758422 (Version 2)
Quarter: 2019Q3

REPORT INFORMATION
  Report Type: Spontaneous
  Country: US (occurrence: US)
  Receive Date: 20190830
  Receipt Date: 20190924
  Transmission Date: 20191005
  Serious: No
  Sender: FDA-Public Use
  Company Number: US-ASTRAZENECA-2019SF12656

PATIENT
  Sex: Male
  Weight: 113.9 kg

DRUGS (1)
  1. BEVESPI AEROSPHERE [Suspect]
     Active Substance: FORMOTEROL FUMARATE\GLYCOPYRROLATE
     Indication: CHRONIC OBSTRUCTIVE PULMONARY DISEASE
     Dosage: 9 MCG./4.8 MCG., 2 PUFFS TWICE A DAY
     Route: 055

REACTIONS (5)
  - Dyspnoea [Unknown]
  - Loss of personal independence in daily activities [Unknown]
  - Wrong technique in product usage process [Unknown]
  - Device use issue [Unknown]
  - Product dose omission [Unknown]
